FAERS Safety Report 4743521-4 (Version None)
Quarter: 2005Q3

REPORT INFORMATION
  Report Type: 
  Country: None (occurrence: None)
  Receive Date: 20050812
  Receipt Date: 20050801
  Transmission Date: 20060218
  Serious: Yes (Life-Threatening, Hospitalization)
  Sender: FDA-Public Use
  Company Number: FI-NOVOPROD-245986

PATIENT
  Age: 76 Year
  Sex: Male

DRUGS (5)
  1. NOVOSEVEN [Suspect]
     Indication: HAEMORRHAGE
     Dosage: 87 UG/KG, UNK
  2. RED BLOOD CELLS [Concomitant]
  3. FRESH FROZEN PLASMA [Concomitant]
  4. PLATELETS [Concomitant]
  5. APROTININ [Concomitant]

REACTIONS (3)
  - EMBOLIC CEREBRAL INFARCTION [None]
  - HAEMODIALYSIS [None]
  - POST PROCEDURAL COMPLICATION [None]
